FAERS Safety Report 16236998 (Version 2)
Quarter: 2019Q2

REPORT INFORMATION
  Report Type: Spontaneous
  Country: BE (occurrence: BE)
  Receive Date: 20190425
  Receipt Date: 20190504
  Transmission Date: 20190711
  Serious: Yes (Hospitalization, Other)
  Sender: FDA-Public Use
  Company Number: BE-AUROBINDO-AUR-APL-2019-022933

PATIENT

DRUGS (1)
  1. CETIRIZINE FILM-COATED TABLETS [Suspect]
     Active Substance: CETIRIZINE HYDROCHLORIDE
     Indication: HYPERSENSITIVITY
     Dosage: 8 DOSAGE FORM,8 DF, UNK
     Route: 065

REACTIONS (4)
  - Social problem [Unknown]
  - Overdose [Unknown]
  - Paralysis [Unknown]
  - Somnolence [Unknown]

NARRATIVE: CASE EVENT DATE: 20190221
